FAERS Safety Report 17112053 (Version 1)
Quarter: 2019Q4

REPORT INFORMATION
  Report Type: Spontaneous
  Country: US (occurrence: US)
  Receive Date: 20191203
  Receipt Date: 20191203
  Transmission Date: 20200122
  Serious: Yes (Other)
  Sender: FDA-Public Use
  Company Number: None

PATIENT
  Age: 39 Year
  Sex: Female
  Weight: 99 kg

DRUGS (1)
  1. TETRACAINE. [Suspect]
     Active Substance: TETRACAINE
     Indication: OPHTHALMOLOGICAL EXAMINATION

REACTIONS (5)
  - Visual impairment [None]
  - Eye irritation [None]
  - Eye pain [None]
  - Vision blurred [None]
  - Eye swelling [None]

NARRATIVE: CASE EVENT DATE: 20191203
